FAERS Safety Report 8194285-6 (Version None)
Quarter: 2012Q1

REPORT INFORMATION
  Report Type: 
  Country: None (occurrence: None)
  Receive Date: 20120308
  Receipt Date: 20120305
  Transmission Date: 20120608
  Serious: No
  Sender: FDA-Public Use
  Company Number: US-PFIZER INC-2012059137

PATIENT
  Sex: Female
  Weight: 114.29 kg

DRUGS (2)
  1. LYRICA [Suspect]
     Indication: DIABETIC NEUROPATHY
     Dosage: 400 MG, 1X/DAY
     Route: 048
     Dates: start: 20060101, end: 20111001
  2. DEPAKOTE [Concomitant]
     Indication: CONVULSION
     Dosage: UNK

REACTIONS (2)
  - LIMB DISCOMFORT [None]
  - PAIN [None]
